FAERS Safety Report 10217062 (Version 2)
Quarter: 2014Q2

REPORT INFORMATION
  Report Type: Other
  Country: CA (occurrence: CA)
  Receive Date: 20140604
  Receipt Date: 20140604
  Transmission Date: 20141212
  Serious: Yes (Hospitalization, Other)
  Sender: FDA-Public Use
  Company Number: CA-GSKPPD-2014GSK019349

PATIENT
  Age: 49 Year
  Sex: Female

DRUGS (3)
  1. AVANDIA [Suspect]
     Indication: DIABETES MELLITUS
     Dosage: DATE OF AVANDIA USE COULD NOT BE CONFIRMED IN RECORDS REVIEWED.
     Route: 048
  2. AVANDAMET [Suspect]
     Indication: DIABETES MELLITUS
     Dosage: DATES OF AVANDAMET USE COULD NOT BE CONFIRMED IN RECORDS REVIEWED.
     Route: 048
  3. HYDROCHLOROTHIAZIDE [Concomitant]

REACTIONS (5)
  - Atrioventricular block [Recovered/Resolved]
  - Implantable defibrillator insertion [Recovered/Resolved]
  - Acute coronary syndrome [None]
  - Bradycardia [None]
  - Tachycardia [None]
